FAERS Safety Report 7127918-3 (Version None)
Quarter: 2010Q4

REPORT INFORMATION
  Report Type: 
  Country: None (occurrence: None)
  Receive Date: 20101130
  Receipt Date: 20101123
  Transmission Date: 20110411
  Serious: Yes (Hospitalization)
  Sender: FDA-Public Use
  Company Number: IT-BRACCO-000996

PATIENT
  Sex: Male

DRUGS (13)
  1. MIRTAZAPINA [Concomitant]
     Route: 048
     Dates: start: 20080101
  2. TRIATEC [Concomitant]
     Route: 048
     Dates: start: 20080101
  3. LANOXIN [Concomitant]
     Route: 048
     Dates: start: 20080101
  4. LASIX [Concomitant]
     Route: 048
     Dates: start: 20080101
  5. NOVONORM [Concomitant]
     Route: 048
     Dates: start: 20080101
  6. LANSOX [Concomitant]
     Route: 048
     Dates: start: 20080101
  7. COUMADIN [Concomitant]
     Route: 048
     Dates: start: 20080101
  8. KANRENOL [Concomitant]
     Route: 048
     Dates: start: 20080101
  9. SELECTIN [Concomitant]
     Route: 048
     Dates: start: 20080101
  10. ZOLOFT [Concomitant]
     Route: 048
     Dates: start: 20080101
  11. CONGESCOR [Concomitant]
     Route: 048
     Dates: start: 20080101
  12. ZYLORIC [Concomitant]
     Route: 048
     Dates: start: 20080101
  13. IOPAMIRO [Suspect]
     Indication: COMPUTERISED TOMOGRAM
     Dosage: 100 MG
     Route: 042
     Dates: start: 20101117, end: 20101117

REACTIONS (5)
  - ANURIA [None]
  - ATRIAL TACHYCARDIA [None]
  - FLUID RETENTION [None]
  - HEART RATE DECREASED [None]
  - RENAL FAILURE ACUTE [None]
